FAERS Safety Report 17653124 (Version 1)
Quarter: 2020Q2

REPORT INFORMATION
  Report Type: Spontaneous
  Country: US (occurrence: US)
  Receive Date: 20200409
  Receipt Date: 20200409
  Transmission Date: 20200713
  Serious: Yes (Hospitalization)
  Sender: FDA-Public Use
  Company Number: US-SLATE RUN PHARMACEUTICALS-SLTR-AE-20-23

PATIENT
  Age: 35 Year
  Sex: Male

DRUGS (3)
  1. BACLOFEN. [Concomitant]
     Active Substance: BACLOFEN
  2. VANCOMYCIN HCL FOR INJECTION USP [Suspect]
     Active Substance: VANCOMYCIN HYDROCHLORIDE
     Indication: STAPHYLOCOCCAL INFECTION
  3. MEROPENEM. [Concomitant]
     Active Substance: MEROPENEM

REACTIONS (4)
  - Electroencephalogram abnormal [Recovered/Resolved]
  - Depressed level of consciousness [Recovered/Resolved]
  - Urinary tract infection [Unknown]
  - Acute kidney injury [Recovering/Resolving]
